FAERS Safety Report 16384457 (Version 2)
Quarter: 2019Q2

REPORT INFORMATION
  Report Type: Report from Study
  Country: None (occurrence: US)
  Receive Date: 20190603
  Receipt Date: 20190607
  Transmission Date: 20190711
  Serious: Yes (Hospitalization)
  Sender: FDA-Public Use
  Company Number: US-ABBVIE-19K-163-2805109-00

PATIENT
  Sex: Female

DRUGS (1)
  1. HUMIRA [Suspect]
     Active Substance: ADALIMUMAB
     Indication: CROHN^S DISEASE
     Route: 058

REACTIONS (7)
  - Back pain [Not Recovered/Not Resolved]
  - Fall [Recovered/Resolved]
  - Rash generalised [Recovered/Resolved]
  - Gait inability [Unknown]
  - Skin fissures [Recovered/Resolved]
  - Nervous system disorder [Not Recovered/Not Resolved]
  - Skin haemorrhage [Recovered/Resolved]
